FAERS Safety Report 25817880 (Version 1)
Quarter: 2025Q3

REPORT INFORMATION
  Report Type: Spontaneous
  Country: GB (occurrence: GB)
  Receive Date: 20250918
  Receipt Date: 20250918
  Transmission Date: 20251021
  Serious: Yes (Hospitalization)
  Sender: VERTEX
  Company Number: GB-VERTEX PHARMACEUTICALS-2025-015234

PATIENT
  Sex: Female

DRUGS (20)
  1. ELEXACAFTOR\IVACAFTOR\TEZACAFTOR [Suspect]
     Active Substance: ELEXACAFTOR\IVACAFTOR\TEZACAFTOR
     Indication: Cystic fibrosis
     Dosage: (75 MG IVACAFTOR/ 50 MG TEZACAFTOR/ 100 MG ELEXACAFTOR); TWO TABLETS IN AM
     Route: 048
     Dates: end: 2025
  2. ELEXACAFTOR\IVACAFTOR\TEZACAFTOR [Suspect]
     Active Substance: ELEXACAFTOR\IVACAFTOR\TEZACAFTOR
     Dosage: ONE KAFTRIO IN AM
     Route: 048
     Dates: start: 2025
  3. ELEXACAFTOR\IVACAFTOR\TEZACAFTOR [Suspect]
     Active Substance: ELEXACAFTOR\IVACAFTOR\TEZACAFTOR
     Dosage: (75 MG IVACAFTOR/ 50 MG TEZACAFTOR/ 100 MG ELEXACAFTOR); 2 TABLETS/1 TABLET ON ALTERNATE DAYS
     Route: 048
     Dates: start: 2025
  4. KALYDECO [Suspect]
     Active Substance: IVACAFTOR
     Indication: Cystic fibrosis
     Dosage: ONE TABLET IN PM
     Route: 048
  5. BRIVARACETAM [Concomitant]
     Active Substance: BRIVARACETAM
  6. TOBRAMYCIN [Concomitant]
     Active Substance: TOBRAMYCIN
  7. AZITHROMYCIN [Concomitant]
     Active Substance: AZITHROMYCIN
  8. Paravit CF [Concomitant]
  9. MIRTAZAPINE [Concomitant]
     Active Substance: MIRTAZAPINE
  10. DOXYCYCLINE [Concomitant]
     Active Substance: DOXYCYCLINE
  11. ALBUTEROL [Concomitant]
     Active Substance: ALBUTEROL
  12. FORMOTEROL [Concomitant]
     Active Substance: FORMOTEROL
  13. DIHYDROCODEINE [Concomitant]
     Active Substance: DIHYDROCODEINE
  14. SUCRALFATE [Concomitant]
     Active Substance: SUCRALFATE
  15. FEXOFENADINE [Concomitant]
     Active Substance: FEXOFENADINE HYDROCHLORIDE
  16. BISACODYL [Concomitant]
     Active Substance: BISACODYL
  17. POLYETHYLENE GLYCOL 3350\POTASSIUM CHLORIDE\SODIUM BICARBONATE\SODIUM [Concomitant]
     Active Substance: POLYETHYLENE GLYCOL 3350\POTASSIUM CHLORIDE\SODIUM BICARBONATE\SODIUM CHLORIDE
  18. LIDOCAINE [Concomitant]
     Active Substance: LIDOCAINE
  19. CREON [Concomitant]
     Active Substance: PANCRELIPASE AMYLASE\PANCRELIPASE LIPASE\PANCRELIPASE PROTEASE
  20. DULOXETINE [Concomitant]
     Active Substance: DULOXETINE

REACTIONS (2)
  - Gastrointestinal disorder [Unknown]
  - Liver function test abnormal [Recovering/Resolving]

NARRATIVE: CASE EVENT DATE: 20250101
